FAERS Safety Report 9213532 (Version 4)
Quarter: 2013Q3

REPORT INFORMATION
  Report Type: Spontaneous
  Country: US (occurrence: US)
  Receive Date: 20130405
  Receipt Date: 20130919
  Transmission Date: 20140515
  Serious: Yes (Other)
  Sender: FDA-Public Use
  Company Number: US-PFIZER INC-2013106307

PATIENT
  Age: 62 Year
  Sex: Female
  Weight: 61.68 kg

DRUGS (20)
  1. LYRICA [Suspect]
     Indication: PAIN IN EXTREMITY
     Dosage: 50 MG, 2X/DAY
  2. LYRICA [Suspect]
     Indication: BACK PAIN
     Dosage: 50 MG, 2X/DAY
     Dates: end: 2013
  3. LYRICA [Suspect]
     Indication: NEUROPATHY PERIPHERAL
     Dosage: 50 MG 1, 2X/DAY
     Route: 048
     Dates: start: 201206
  4. LYRICA [Suspect]
     Indication: SCIATICA
  5. LYRICA [Suspect]
     Indication: BACK PAIN
  6. LYRICA [Suspect]
     Indication: HYPOAESTHESIA
  7. LYRICA [Suspect]
     Indication: HYPOAESTHESIA
  8. LYRICA [Suspect]
     Indication: ARTHRALGIA
  9. LYRICA [Suspect]
     Indication: RADICULAR PAIN
  10. ADVIL [Suspect]
     Indication: PAIN IN EXTREMITY
     Dosage: UNK
  11. ADVIL [Suspect]
     Indication: BACK PAIN
  12. ASPIRIN [Suspect]
     Indication: PAIN IN EXTREMITY
     Dosage: UNK
  13. ASPIRIN [Suspect]
     Indication: BACK PAIN
  14. TYLENOL [Suspect]
     Indication: PAIN IN EXTREMITY
     Dosage: UNK
  15. TYLENOL [Suspect]
     Indication: BACK PAIN
  16. CLONAZEPAM [Concomitant]
     Indication: ANXIETY
     Dosage: 5 MG, 1X/DAY
  17. ATORVASTATIN CALCIUM [Concomitant]
     Indication: BLOOD CHOLESTEROL INCREASED
     Dosage: 20 MG, 1X/DAY
  18. SYNTHROID [Concomitant]
     Indication: AUTOIMMUNE THYROIDITIS
     Dosage: 0.025 MG, 1X/DAY
  19. SOMA [Concomitant]
     Dosage: 350 MG, 3X/DAY
  20. LIPITOR [Concomitant]
     Indication: BLOOD CHOLESTEROL INCREASED
     Dosage: 20 MG, 1X/DAY

REACTIONS (8)
  - Drug ineffective [Unknown]
  - Gait disturbance [Unknown]
  - Dysstasia [Unknown]
  - Activities of daily living impaired [Unknown]
  - Urinary retention [Unknown]
  - Musculoskeletal stiffness [Unknown]
  - Vision blurred [Recovered/Resolved]
  - Pain [Unknown]
